FAERS Safety Report 5823985-5 (Version None)
Quarter: 2008Q3

REPORT INFORMATION
  Report Type: 
  Country: None (occurrence: None)
  Receive Date: 20080728
  Receipt Date: 20080722
  Transmission Date: 20090109
  Serious: No
  Sender: FDA-Public Use
  Company Number: DE-ELI_LILLY_AND_COMPANY-DE200807004516

PATIENT
  Sex: Female
  Weight: 68 kg

DRUGS (3)
  1. ZYPREXA [Suspect]
     Indication: DELUSIONAL DISORDER, UNSPECIFIED TYPE
     Dosage: 25 MG, DAILY (1/D)
     Route: 048
     Dates: start: 20080314
  2. ABILIFY [Concomitant]
     Indication: SCHIZOPHRENIA
     Dosage: 20 MG, DAILY (1/D)
     Route: 048
     Dates: start: 20080513
  3. FERRO SANOL DUODENAL [Concomitant]
     Indication: IRON DEFICIENCY ANAEMIA
     Dosage: UNK, DAILY (1/D)
     Route: 048
     Dates: start: 20080514, end: 20080711

REACTIONS (2)
  - EPISTAXIS [None]
  - OVERDOSE [None]
